FAERS Safety Report 5633943-1 (Version None)
Quarter: 2008Q1

REPORT INFORMATION
  Report Type: 
  Country: None (occurrence: None)
  Receive Date: 20080215
  Receipt Date: 20080208
  Transmission Date: 20080703
  Serious: Yes (Other)
  Sender: FDA-Public Use
  Company Number: 2008SP001441

PATIENT
  Age: 44 Year
  Sex: Male

DRUGS (5)
  1. TEMODAL [Suspect]
     Indication: BRAIN NEOPLASM
     Dosage: ; PO
     Route: 048
     Dates: start: 20040601, end: 20060501
  2. DEPAKENE [Suspect]
     Indication: EPILEPSY
     Dosage: 1250 MG; QD;
  3. GARDENAL (PHENOBARBITAL) [Suspect]
     Indication: EPILEPSY
     Dosage: 150 MG; QD;
  4. URBANYL (CLOBAZAM) [Suspect]
     Indication: EPILEPSY
     Dosage: 5 MG; QD;
  5. TRILEPTAL [Suspect]
     Indication: EPILEPSY
     Dosage: 800 MG; QD;

REACTIONS (2)
  - BLOOD TESTOSTERONE DECREASED [None]
  - ERECTILE DYSFUNCTION [None]
